FAERS Safety Report 8780293 (Version 1)
Quarter: 2012Q4

REPORT INFORMATION
  Report Type: Spontaneous
  Country: US (occurrence: None)
  Receive Date: 20120905
  Receipt Date: 20120905
  Transmission Date: 20130627
  Serious: No
  Sender: FDA-Public Use
  Company Number: None

PATIENT
  Age: 75 Year
  Weight: 63.5 kg

DRUGS (1)
  1. PRADAXA [Suspect]
     Dates: start: 20120610, end: 20120809

REACTIONS (3)
  - Feeling abnormal [None]
  - Pruritus [None]
  - Dyspepsia [None]
